FAERS Safety Report 10156215 (Version 2)
Quarter: 2014Q2

REPORT INFORMATION
  Report Type: Report from Study
  Country: FR (occurrence: FR)
  Receive Date: 20140507
  Receipt Date: 20140603
  Transmission Date: 20141212
  Serious: Yes (Hospitalization)
  Sender: FDA-Public Use
  Company Number: FR-ROCHE-1391288

PATIENT
  Age: 54 Year
  Sex: Female
  Weight: 69 kg

DRUGS (18)
  1. TRASTUZUMAB EMTANSINE [Suspect]
     Indication: HER-2 POSITIVE BREAST CANCER
     Dosage: MOST RECENT DOSE PRIOR TO HEPATIC CYTOLYSIS ON 24/APR/2014.
     Route: 042
     Dates: start: 20121017
  2. HYDROCORTISONE [Concomitant]
     Indication: RENAL FAILURE
  3. ADIXONE [Concomitant]
     Indication: RENAL FAILURE
  4. PROZAC [Concomitant]
     Indication: ANXIETY
  5. TEGRETOL [Concomitant]
     Indication: DELIRIUM
  6. TRANXENE [Concomitant]
     Indication: DELIRIUM
  7. TERCIAN [Concomitant]
     Indication: DELIRIUM
  8. OMEPRAZOLE [Concomitant]
  9. DIFFU-K [Concomitant]
     Indication: NUTRITIONAL SUPPLEMENTATION
  10. TARDYFERON (FRANCE) [Concomitant]
     Indication: NUTRITIONAL SUPPLEMENTATION
  11. LEVOTHYROX [Concomitant]
     Indication: HYPOTHYROIDISM
  12. MAGNE B6 (FRANCE) [Concomitant]
     Indication: NUTRITIONAL SUPPLEMENTATION
  13. LYTOS [Concomitant]
     Indication: HYPONATRAEMIA
  14. VOLTARENE [Concomitant]
     Indication: PAIN IN EXTREMITY
     Route: 065
     Dates: start: 20130103
  15. MYOLASTAN [Concomitant]
     Indication: PAIN IN EXTREMITY
     Route: 065
     Dates: start: 20121219
  16. PULMODEXANE [Concomitant]
     Indication: LARYNGITIS
     Route: 065
     Dates: start: 20130128
  17. PULMODEXANE [Concomitant]
     Indication: PHARYNGITIS
  18. THERALENE (FRANCE) [Concomitant]
     Indication: INSOMNIA
     Route: 065
     Dates: start: 20130804

REACTIONS (1)
  - Transaminases increased [Not Recovered/Not Resolved]
